FAERS Safety Report 12496003 (Version 1)
Quarter: 2016Q2

REPORT INFORMATION
  Report Type: Report from Study
  Country: PK (occurrence: PK)
  Receive Date: 20160624
  Receipt Date: 20160624
  Transmission Date: 20160815
  Serious: Yes (Other)
  Sender: FDA-Public Use
  Company Number: PK-ASTELLAS-2016US022117

PATIENT

DRUGS (1)
  1. ERLOTINIB [Suspect]
     Active Substance: ERLOTINIB
     Indication: NON-SMALL CELL LUNG CANCER
     Dosage: UNK, UNKNOWN FREQ.
     Route: 065

REACTIONS (3)
  - Dyspnoea [Unknown]
  - Diarrhoea [Unknown]
  - Hypothyroidism [Unknown]
